FAERS Safety Report 4627187-X (Version None)
Quarter: 2005Q1

REPORT INFORMATION
  Report Type: 
  Country: None (occurrence: None)
  Receive Date: 20050331
  Receipt Date: 20050321
  Transmission Date: 20050727
  Serious: Yes (Other)
  Sender: FDA-Public Use
  Company Number: 213299

PATIENT
  Age: 58 Year
  Sex: Female

DRUGS (8)
  1. HERCEPTIN [Suspect]
     Indication: BREAST CANCER METASTATIC
     Dosage: 162 MG, 1/WEEK, INTRAVENOUS
     Route: 042
     Dates: start: 20041201
  2. GEMZAR [Concomitant]
  3. SYNTHROID [Concomitant]
  4. COUMADIN [Concomitant]
  5. POTASSIUM (POTASSIUM NOS) [Concomitant]
  6. PREVACID [Concomitant]
  7. LASIX [Concomitant]
  8. ELAVIL [Concomitant]

REACTIONS (4)
  - BREAST CANCER METASTATIC [None]
  - CHEST PAIN [None]
  - DISEASE RECURRENCE [None]
  - PULMONARY FIBROSIS [None]
